FAERS Safety Report 17820193 (Version 1)
Quarter: 2020Q2

REPORT INFORMATION
  Report Type: Spontaneous
  Country: JP (occurrence: JP)
  Receive Date: 20200525
  Receipt Date: 20200525
  Transmission Date: 20200714
  Serious: Yes (Death, Life-Threatening, Other)
  Sender: FDA-Public Use
  Company Number: JP-ACCORD-182746

PATIENT
  Age: 50 Year
  Sex: Male

DRUGS (2)
  1. CARBOPLATIN. [Suspect]
     Active Substance: CARBOPLATIN
     Indication: SMALL CELL LUNG CANCER
  2. ETOPOSIDE. [Suspect]
     Active Substance: ETOPOSIDE
     Indication: SMALL CELL LUNG CANCER

REACTIONS (12)
  - Nausea [Unknown]
  - Anaemia [Unknown]
  - Coagulopathy [Unknown]
  - Metastases to liver [Fatal]
  - Hepatic haematoma [Fatal]
  - Acute hepatic failure [Fatal]
  - Hepatic enzyme increased [Unknown]
  - Haemoperitoneum [Fatal]
  - Hyperkalaemia [Unknown]
  - Liver carcinoma ruptured [Fatal]
  - Malaise [Unknown]
  - Acute kidney injury [Unknown]
